FAERS Safety Report 7449144-0 (Version None)
Quarter: 2011Q2

REPORT INFORMATION
  Report Type: 
  Country: None (occurrence: None)
  Receive Date: 20110502
  Receipt Date: 20110421
  Transmission Date: 20111010
  Serious: Yes (Other)
  Sender: FDA-Public Use
  Company Number: US-BIOGENIDEC-2010BI029005

PATIENT
  Age: 29 Year
  Sex: Female

DRUGS (8)
  1. XANAX [Concomitant]
     Dates: end: 20100801
  2. MACROBID [Concomitant]
     Dates: start: 20100801
  3. PRENATAL VITAMINS [Concomitant]
  4. BIRTH CONTROL PILL [Concomitant]
     Dates: end: 20100801
  5. ZITHROMAX [Concomitant]
     Dates: start: 20101201
  6. WELLBUTRIN [Concomitant]
     Dates: end: 20100801
  7. TYSABRI [Suspect]
     Indication: MULTIPLE SCLEROSIS
     Route: 042
     Dates: start: 20090918, end: 20100806
  8. AMBIEN [Concomitant]
     Dates: end: 20100801

REACTIONS (2)
  - CEPHALO-PELVIC DISPROPORTION [None]
  - PREGNANCY [None]
